FAERS Safety Report 5710372-3 (Version None)
Quarter: 2008Q2

REPORT INFORMATION
  Report Type: 
  Country: None (occurrence: None)
  Receive Date: 20080418
  Receipt Date: 20080407
  Transmission Date: 20081010
  Serious: Yes (Other)
  Sender: FDA-Public Use
  Company Number: CA-PFIZER INC-2008031823

PATIENT
  Age: 65 Year
  Sex: Male

DRUGS (7)
  1. CHAMPIX [Suspect]
     Indication: SMOKING CESSATION THERAPY
     Route: 048
  2. INSULIN [Concomitant]
  3. LIPITOR [Concomitant]
  4. DOXAZOSIN MESYLATE [Concomitant]
  5. EZETROL [Concomitant]
  6. ALTACE [Concomitant]
  7. PANTOPRAZOLE SODIUM [Concomitant]

REACTIONS (2)
  - BLOOD GLUCOSE INCREASED [None]
  - WEIGHT INCREASED [None]
